FAERS Safety Report 7218436-2 (Version None)
Quarter: 2011Q1

REPORT INFORMATION
  Report Type: 
  Country: None (occurrence: None)
  Receive Date: 20110110
  Receipt Date: 20101230
  Transmission Date: 20110831
  Serious: Yes (Other)
  Sender: FDA-Public Use
  Company Number: PHHY2010US89397

PATIENT
  Sex: Male

DRUGS (6)
  1. CELLCEPT [Suspect]
     Dosage: UNK
  2. METFORMIN [Concomitant]
     Dosage: UNK
  3. PROGRAF [Suspect]
     Dosage: UNK
  4. ACTOS [Suspect]
     Dosage: UNK
  5. MYFORTIC [Suspect]
     Dosage: UNK
  6. CYCLOSPORINE [Suspect]
     Dosage: UNK

REACTIONS (3)
  - DIABETES MELLITUS [None]
  - LIPID METABOLISM DISORDER [None]
  - PRECANCEROUS SKIN LESION [None]
